FAERS Safety Report 5340722-1 (Version None)
Quarter: 2007Q2

REPORT INFORMATION
  Report Type: 
  Country: None (occurrence: None)
  Receive Date: 20070405
  Receipt Date: 20061206
  Transmission Date: 20071010
  Serious: No
  Sender: FDA-Public Use
  Company Number: US200612000916

PATIENT
  Age: 45 Year
  Sex: Male

DRUGS (3)
  1. CYMBALTA [Suspect]
     Dosage: 30 MG
     Dates: start: 20050701
  2. DEXEDRINE [Concomitant]
  3. METFORMIN HCL [Concomitant]

REACTIONS (1)
  - DIABETES MELLITUS [None]
